FAERS Safety Report 10900987 (Version 1)
Quarter: 2015Q1

REPORT INFORMATION
  Report Type: Spontaneous
  Country: IN (occurrence: None)
  Receive Date: 20150303
  Receipt Date: 20150303
  Transmission Date: 20150721
  Serious: Yes (Hospitalization)
  Sender: FDA-Public Use
  Company Number: None

PATIENT
  Age: 67 Year
  Sex: Male

DRUGS (8)
  1. T. THYRONORM [Concomitant]
  2. CLARITHROMYCIN. [Concomitant]
     Active Substance: CLARITHROMYCIN
  3. TAZOMAC [Concomitant]
  4. T. DOLO [Concomitant]
  5. T. PULMOCLEAR [Concomitant]
  6. EPTOIN [Suspect]
     Active Substance: PHENYTOIN SODIUM
     Indication: SEIZURE
     Dosage: 2 TABLETS QHS/BEDTIME
     Route: 048
  7. T. LACOSET [Concomitant]
  8. T. LEVIPIL [Concomitant]

REACTIONS (1)
  - Hepatic enzyme increased [None]
